FAERS Safety Report 11603332 (Version 1)
Quarter: 2015Q4

REPORT INFORMATION
  Report Type: Spontaneous
  Country: US (occurrence: None)
  Receive Date: 20151005
  Receipt Date: 20151005
  Transmission Date: 20160304
  Serious: Yes (Hospitalization)
  Sender: FDA-Public Use
  Company Number: None

PATIENT
  Age: 70 Year
  Sex: Male
  Weight: 74.5 kg

DRUGS (2)
  1. MORPHINE [Suspect]
     Active Substance: MORPHINE
     Indication: PAIN
     Dates: start: 20141202, end: 20150726
  2. BACLOFEN. [Suspect]
     Active Substance: BACLOFEN
     Indication: PAIN
     Dates: start: 20140327, end: 20150726

REACTIONS (5)
  - Confusional state [None]
  - Fall [None]
  - Blood creatinine increased [None]
  - Depressed level of consciousness [None]
  - Mental status changes [None]

NARRATIVE: CASE EVENT DATE: 20150726
